FAERS Safety Report 23393684 (Version 1)
Quarter: 2024Q1

REPORT INFORMATION
  Report Type: Spontaneous
  Country: US (occurrence: US)
  Receive Date: 20240111
  Receipt Date: 20240111
  Transmission Date: 20240410
  Serious: Yes (Life-Threatening, Other)
  Sender: FDA-Public Use
  Company Number: US-PFIZER INC-202400005825

PATIENT
  Age: 65 Year
  Sex: Female
  Weight: 63.5 kg

DRUGS (2)
  1. DOBUTAMINE HYDROCHLORIDE [Suspect]
     Active Substance: DOBUTAMINE HYDROCHLORIDE
     Indication: Cardiac ventricular disorder
     Dosage: UNK
     Dates: end: 20231212
  2. VELETRI [Concomitant]
     Active Substance: EPOPROSTENOL
     Indication: Cardiac ventricular disorder

REACTIONS (6)
  - Pulmonary arterial hypertension [Unknown]
  - Right ventricular dilatation [Unknown]
  - Tricuspid valve incompetence [Unknown]
  - Right atrial pressure increased [Unknown]
  - Paracentesis [Unknown]
  - Hypotension [Not Recovered/Not Resolved]

NARRATIVE: CASE EVENT DATE: 20231204
